FAERS Safety Report 6246520-9 (Version None)
Quarter: 2009Q2

REPORT INFORMATION
  Report Type: 
  Country: None (occurrence: None)
  Receive Date: 20090626
  Receipt Date: 20090325
  Transmission Date: 20091009
  Serious: No
  Sender: FDA-Public Use
  Company Number: US-BAYER-200916646NA

PATIENT
  Sex: Female

DRUGS (1)
  1. YAZ [Suspect]
     Indication: DRUG USE FOR UNKNOWN INDICATION
     Route: 048
     Dates: start: 20090201

REACTIONS (4)
  - CHEST DISCOMFORT [None]
  - DYSPEPSIA [None]
  - MUSCLE TIGHTNESS [None]
  - VAGINAL HAEMORRHAGE [None]
